APPROVED DRUG PRODUCT: DROPERIDOL
Active Ingredient: DROPERIDOL
Strength: 2.5MG/ML
Dosage Form/Route: INJECTABLE;INJECTION
Application: A072335 | Product #001
Applicant: LUITPOLD PHARMACEUTICALS INC
Approved: Oct 24, 1988 | RLD: No | RS: No | Type: DISCN